FAERS Safety Report 18044785 (Version 5)
Quarter: 2022Q4

REPORT INFORMATION
  Report Type: Spontaneous
  Country: CA (occurrence: CA)
  Receive Date: 20200720
  Receipt Date: 20221213
  Transmission Date: 20230112
  Serious: Yes (Hospitalization, Other)
  Sender: FDA-Public Use
  Company Number: CA-PFIZER INC-2020251945

PATIENT
  Age: 75 Year
  Sex: Female
  Weight: 70 kg

DRUGS (28)
  1. NAPROXEN SODIUM [Suspect]
     Active Substance: NAPROXEN SODIUM
     Indication: Arthralgia
     Route: 065
  2. PREGABALIN [Suspect]
     Active Substance: PREGABALIN
     Indication: Arthralgia
     Route: 065
  3. GABAPENTIN [Suspect]
     Active Substance: GABAPENTIN
     Indication: Arthralgia
  4. BRINZOLAMIDE\TIMOLOL [Suspect]
     Active Substance: BRINZOLAMIDE\TIMOLOL
     Indication: Glaucoma
     Route: 047
  5. ACETAMINOPHEN [Concomitant]
     Active Substance: ACETAMINOPHEN
  6. LATANOPROST [Suspect]
     Active Substance: LATANOPROST
     Indication: Glaucoma
     Route: 047
  7. LATANOPROST [Suspect]
     Active Substance: LATANOPROST
     Indication: Product used for unknown indication
  8. CALCIUM CARBONATE [Suspect]
     Active Substance: CALCIUM CARBONATE
     Indication: Product used for unknown indication
     Route: 065
  9. TELMISARTAN [Suspect]
     Active Substance: TELMISARTAN
     Indication: Hypertension
     Route: 065
  10. TELMISARTAN [Suspect]
     Active Substance: TELMISARTAN
     Indication: Product used for unknown indication
  11. ZOPICLONE [Suspect]
     Active Substance: ZOPICLONE
     Indication: Insomnia
     Route: 065
  12. IPRATROPIUM [Suspect]
     Active Substance: IPRATROPIUM
     Indication: Rhinitis
     Route: 045
  13. IPRATROPIUM [Suspect]
     Active Substance: IPRATROPIUM
     Indication: Product used for unknown indication
  14. CLONAZEPAM [Suspect]
     Active Substance: CLONAZEPAM
     Route: 065
  15. ESTRADIOL [Suspect]
     Active Substance: ESTRADIOL
     Indication: Menopausal symptoms
     Route: 065
  16. VITAMIN B6 [Suspect]
     Active Substance: PYRIDOXINE HYDROCHLORIDE
     Route: 065
  17. ATORVASTATIN [Suspect]
     Active Substance: ATORVASTATIN
     Indication: Dyslipidaemia
     Route: 065
  18. ATORVASTATIN [Suspect]
     Active Substance: ATORVASTATIN
     Indication: Product used for unknown indication
  19. VITAMIN D3 [Suspect]
     Active Substance: CHOLECALCIFEROL
     Indication: Product used for unknown indication
     Route: 065
  20. VITAMINS [Suspect]
     Active Substance: VITAMINS
     Indication: Product use in unapproved indication
     Route: 065
  21. AZARGA [Suspect]
     Active Substance: BRINZOLAMIDE\TIMOLOL MALEATE
  22. DICLOFENAC [Suspect]
     Active Substance: DICLOFENAC
     Indication: Arthralgia
     Route: 065
  23. AMOXICILLIN [Suspect]
     Active Substance: AMOXICILLIN
     Route: 065
  24. ACETAMINOPHEN [Suspect]
     Active Substance: ACETAMINOPHEN
     Indication: Product used for unknown indication
     Route: 065
  25. IBUPROFEN [Suspect]
     Active Substance: IBUPROFEN
     Indication: Arthralgia
     Route: 065
  26. ESTRADIOL [Suspect]
     Active Substance: ESTRADIOL
  27. CHOLECALCIFEROL [Suspect]
     Active Substance: CHOLECALCIFEROL
     Indication: Product used for unknown indication
     Dosage: UNK
  28. AZOPT [Suspect]
     Active Substance: BRINZOLAMIDE
     Indication: Glaucoma
     Dosage: UNK

REACTIONS (7)
  - Toxic epidermal necrolysis [Recovered/Resolved]
  - Haemoglobin decreased [Recovered/Resolved]
  - Product use in unapproved indication [Unknown]
  - Rash erythematous [Unknown]
  - Off label use [Unknown]
  - Epidermal necrosis [Recovered/Resolved]
  - Rash papular [Recovered/Resolved]
